FAERS Safety Report 8571429-5 (Version None)
Quarter: 2012Q3

REPORT INFORMATION
  Report Type: 
  Country: None (occurrence: None)
  Receive Date: 20120806
  Receipt Date: 20120726
  Transmission Date: 20120928
  Serious: Yes (Other)
  Sender: FDA-Public Use
  Company Number: CA-JNJFOC-20120713090

PATIENT
  Sex: Male
  Weight: 60 kg

DRUGS (7)
  1. OMEPRAZOLE (PRISOLEC) [Concomitant]
     Route: 065
  2. PENTASA [Concomitant]
     Route: 065
  3. REMICADE [Suspect]
     Indication: ANKYLOSING SPONDYLITIS
     Route: 042
     Dates: start: 20090407
  4. FLOMAX [Concomitant]
     Route: 065
  5. ACTONEL [Concomitant]
     Route: 065
  6. ENTOCORT EC [Concomitant]
     Route: 065
  7. ASPIRIN [Concomitant]
     Route: 065

REACTIONS (1)
  - RENAL CYST [None]
